FAERS Safety Report 5127287-4 (Version None)
Quarter: 2006Q4

REPORT INFORMATION
  Report Type: 
  Country: None (occurrence: None)
  Receive Date: 20061010
  Receipt Date: 20060926
  Transmission Date: 20070319
  Serious: Yes (Other)
  Sender: FDA-Public Use
  Company Number: US016242

PATIENT
  Age: 68 Year
  Sex: Female

DRUGS (6)
  1. TRISENOX [Suspect]
     Indication: ACUTE PROMYELOCYTIC LEUKAEMIA
     Dates: start: 20050322, end: 20050426
  2. TRISENOX [Suspect]
     Indication: ACUTE PROMYELOCYTIC LEUKAEMIA
     Dosage: 8.25 MG QD INTRAVENOUS DRIP
     Route: 041
     Dates: start: 20050606, end: 20050630
  3. TRISENOX [Suspect]
     Indication: ACUTE PROMYELOCYTIC LEUKAEMIA
     Dosage: 8.7 MG QD INTRAVENOUS DRIP
     Route: 041
     Dates: start: 20050810, end: 20050903
  4. IMIDAPRIL HYDROCHLORIDE [Concomitant]
  5. AMLODIPINE BESYLATE [Concomitant]
  6. ZOLPIDEM TARTRATE [Concomitant]

REACTIONS (4)
  - C-REACTIVE PROTEIN INCREASED [None]
  - HYPOALBUMINAEMIA [None]
  - HYPOPROTEINAEMIA [None]
  - WHITE BLOOD CELL COUNT DECREASED [None]
